FAERS Safety Report 4974979-3 (Version None)
Quarter: 2006Q2

REPORT INFORMATION
  Report Type: 
  Country: None (occurrence: None)
  Receive Date: 20060414
  Receipt Date: 20060414
  Transmission Date: 20061013
  Serious: No
  Sender: FDA-Public Use
  Company Number: None

PATIENT
  Age: 49 Year
  Sex: Male
  Weight: 74.8435 kg

DRUGS (1)
  1. TOPAMAX [Suspect]
     Indication: CLUSTER HEADACHE
     Dosage: STARTED AT 50MG PER DAY SPLIT TWICE A DAY PO ENDED AT 400MG PER DAY SPLIT/TWICE A DAY PO
     Route: 048
     Dates: start: 20050713, end: 20050902

REACTIONS (6)
  - BLINDNESS UNILATERAL [None]
  - EYE PAIN [None]
  - OPTIC NEURITIS [None]
  - PAPILLOEDEMA [None]
  - VISION BLURRED [None]
  - VITREOUS DETACHMENT [None]
